FAERS Safety Report 12702158 (Version 2)
Quarter: 2016Q3

REPORT INFORMATION
  Report Type: Other
  Country: US (occurrence: US)
  Receive Date: 20160831
  Receipt Date: 20160916
  Transmission Date: 20161109
  Serious: Yes (Other)
  Sender: FDA-Public Use
  Company Number: US-ENDO PHARMACEUTICALS INC-2016-005392

PATIENT
  Sex: 0

DRUGS (1)
  1. TESTOPEL [Suspect]
     Active Substance: TESTOSTERONE
     Indication: PRODUCT USED FOR UNKNOWN INDICATION
     Route: 065

REACTIONS (5)
  - Pulmonary embolism [Unknown]
  - Osteonecrosis [Unknown]
  - Deep vein thrombosis [Unknown]
  - Ophthalmic vein thrombosis [Unknown]
  - Off label use [Recovered/Resolved]
